FAERS Safety Report 14423431 (Version 1)
Quarter: 2018Q1

REPORT INFORMATION
  Report Type: Spontaneous
  Country: SE (occurrence: SE)
  Receive Date: 20180123
  Receipt Date: 20180123
  Transmission Date: 20180509
  Serious: Yes (Disabling)
  Sender: FDA-Public Use
  Company Number: SE-TEVA-2018-SE-846930

PATIENT
  Sex: Male

DRUGS (1)
  1. STESOLID [Suspect]
     Active Substance: DIAZEPAM
     Route: 065

REACTIONS (1)
  - Impaired self-care [Unknown]
